FAERS Safety Report 9009694 (Version 1)
Quarter: 2013Q1

REPORT INFORMATION
  Report Type: Spontaneous
  Country: US (occurrence: US)
  Receive Date: 20130112
  Receipt Date: 20130112
  Transmission Date: 20140127
  Serious: Yes (Other)
  Sender: FDA-Public Use
  Company Number: US-AMGEN-USASP2013000651

PATIENT
  Age: 76 Year
  Sex: Female

DRUGS (8)
  1. PROLIA [Suspect]
     Indication: OSTEOPOROSIS POSTMENOPAUSAL
     Dosage: UNK
     Dates: start: 201206
  2. EXFORGE [Concomitant]
  3. SIMVASTATIN [Concomitant]
  4. SINGULAIR [Concomitant]
  5. HYDROXYCHLOROQUINE [Concomitant]
     Indication: SJOGREN^S SYNDROME
     Dosage: UNK
     Dates: start: 2012
  6. B COMPLEX                          /00212701/ [Concomitant]
  7. VITAMIN B12                        /00056201/ [Concomitant]
  8. MULTIVITAMIN                       /00097801/ [Concomitant]

REACTIONS (14)
  - Sjogren^s syndrome [Unknown]
  - Pseudomonas infection [Unknown]
  - Abdominal pain lower [Unknown]
  - Dysuria [Unknown]
  - Micturition urgency [Unknown]
  - Pollakiuria [Unknown]
  - Malaise [Unknown]
  - Vomiting [Unknown]
  - Influenza [Unknown]
  - Bladder disorder [Unknown]
  - Cystitis [Recovered/Resolved]
  - Fungal infection [Unknown]
  - Vaginal discharge [Unknown]
  - Nasopharyngitis [Unknown]
